FAERS Safety Report 5475705-4 (Version None)
Quarter: 2007Q4

REPORT INFORMATION
  Report Type: 
  Country: None (occurrence: None)
  Receive Date: 20071001
  Receipt Date: 20071001
  Transmission Date: 20080405
  Serious: Yes (Other)
  Sender: FDA-Public Use
  Company Number: None

PATIENT
  Sex: Male
  Weight: 79.3795 kg

DRUGS (2)
  1. MUCINEX DM [Suspect]
     Indication: ANTITUSSIVE THERAPY
     Dosage: 1 PILL EVERY 12 HOURS PO
     Route: 048
     Dates: start: 20070928, end: 20070930
  2. MUCINEX DM [Suspect]
     Indication: RESPIRATORY TRACT CONGESTION
     Dosage: 1 PILL EVERY 12 HOURS PO
     Route: 048
     Dates: start: 20070928, end: 20070930

REACTIONS (3)
  - PRURITUS [None]
  - RASH ERYTHEMATOUS [None]
  - SKIN IRRITATION [None]
